FAERS Safety Report 5607078-8 (Version None)
Quarter: 2008Q1

REPORT INFORMATION
  Report Type: 
  Country: None (occurrence: None)
  Receive Date: 20080129
  Receipt Date: 20080117
  Transmission Date: 20080703
  Serious: Yes (Hospitalization)
  Sender: FDA-Public Use
  Company Number: AT-PFIZER INC-2008005586

PATIENT
  Sex: Male

DRUGS (4)
  1. AROMASIN [Suspect]
     Indication: BREAST CANCER
     Route: 048
     Dates: start: 20050401, end: 20080117
  2. RILMENIDINE [Concomitant]
     Route: 048
  3. NORVASC [Concomitant]
     Route: 048
  4. HYPREN PLUS [Concomitant]
     Route: 048

REACTIONS (1)
  - PARTIAL SEIZURES [None]
